FAERS Safety Report 5441986-6 (Version None)
Quarter: 2007Q3

REPORT INFORMATION
  Report Type: 
  Country: None (occurrence: None)
  Receive Date: 20070904
  Receipt Date: 20070831
  Transmission Date: 20080115
  Serious: Yes (Hospitalization)
  Sender: FDA-Public Use
  Company Number: B0485298A

PATIENT
  Sex: Female

DRUGS (6)
  1. PAXIL [Suspect]
     Indication: DEPRESSION
     Dosage: 20MG PER DAY
     Route: 048
     Dates: start: 20050205, end: 20070401
  2. AMOXAN [Concomitant]
     Route: 048
  3. NITRAZEPAM [Concomitant]
     Route: 048
  4. HORIZON [Concomitant]
  5. RIZE [Concomitant]
     Route: 048
  6. MEILAX [Concomitant]
     Route: 048

REACTIONS (3)
  - FRACTURE [None]
  - SELF INJURIOUS BEHAVIOUR [None]
  - SUICIDE ATTEMPT [None]
